FAERS Safety Report 8387526-3 (Version None)
Quarter: 2012Q2

REPORT INFORMATION
  Report Type: 
  Country: None (occurrence: None)
  Receive Date: 20120525
  Receipt Date: 20120522
  Transmission Date: 20120825
  Serious: Yes (Hospitalization, Other)
  Sender: FDA-Public Use
  Company Number: PHHY2011CA95756

PATIENT
  Sex: Male

DRUGS (1)
  1. SANDOSTATIN LAR [Suspect]
     Indication: CARCINOID TUMOUR
     Dosage: 30 MG, BIW
     Route: 030
     Dates: start: 20071119

REACTIONS (12)
  - PULMONARY OEDEMA [None]
  - GENERALISED OEDEMA [None]
  - ASTHENIA [None]
  - HEART RATE INCREASED [None]
  - NEOPLASM MALIGNANT [None]
  - OEDEMA PERIPHERAL [None]
  - DYSPNOEA [None]
  - FREQUENT BOWEL MOVEMENTS [None]
  - MALAISE [None]
  - MUSCLE SPASMS [None]
  - DIARRHOEA [None]
  - ABDOMINAL DISCOMFORT [None]
